FAERS Safety Report 13463271 (Version 5)
Quarter: 2017Q3

REPORT INFORMATION
  Report Type: Spontaneous
  Country: IE (occurrence: IE)
  Receive Date: 20170420
  Receipt Date: 20170808
  Transmission Date: 20171127
  Serious: Yes (Disabling, Other)
  Sender: FDA-Public Use
  Company Number: IE-ALLERGAN-1715101US

PATIENT
  Age: 32 Year
  Sex: Female
  Weight: 69.92 kg

DRUGS (11)
  1. ESCITALOPRAM OXALATE - BP [Suspect]
     Active Substance: ESCITALOPRAM OXALATE
     Dosage: 5 MG, QD
     Route: 048
     Dates: start: 20170324
  2. VALIUM [Concomitant]
     Active Substance: DIAZEPAM
     Dosage: BETWEEN 2.5 MG AND 5 MG DAILY EVERY 3/4 DAYS
     Route: 048
  3. ESCITALOPRAM OXALATE - BP [Suspect]
     Active Substance: ESCITALOPRAM OXALATE
     Dosage: 10 MG, QD
     Route: 048
     Dates: end: 20170323
  4. VALIUM [Concomitant]
     Active Substance: DIAZEPAM
     Indication: PRODUCT USED FOR UNKNOWN INDICATION
     Dosage: 2.5 MG - 5 MG DAILY, PRN
     Route: 048
  5. LEXAPRO [Suspect]
     Active Substance: ESCITALOPRAM OXALATE
     Indication: ANXIETY
     Route: 048
     Dates: start: 20130801
  6. LEXAPRO [Suspect]
     Active Substance: ESCITALOPRAM OXALATE
     Route: 048
     Dates: start: 201609, end: 20170222
  7. ESCITALOPRAM OXALATE - BP [Suspect]
     Active Substance: ESCITALOPRAM OXALATE
     Indication: ANXIETY
     Dosage: BETWEEN 2.5 MG AND 5 MG, EVERY 3/4 DAYS
     Route: 048
  8. LEXAPRO [Suspect]
     Active Substance: ESCITALOPRAM OXALATE
     Route: 048
     Dates: start: 201608, end: 201609
  9. LEXAPRO [Suspect]
     Active Substance: ESCITALOPRAM OXALATE
     Route: 065
     Dates: start: 20170222, end: 20170414
  10. VALIUM [Concomitant]
     Active Substance: DIAZEPAM
     Dates: start: 201512
  11. LEXAPRO [Suspect]
     Active Substance: ESCITALOPRAM OXALATE
     Indication: DEPRESSED MOOD
     Route: 048
     Dates: end: 201608

REACTIONS (36)
  - Irritable bowel syndrome [Recovered/Resolved]
  - Photophobia [Recovered/Resolved]
  - Insomnia [Recovered/Resolved]
  - Flatulence [Recovered/Resolved]
  - Heart rate irregular [Recovered/Resolved]
  - Headache [Not Recovered/Not Resolved]
  - Dizziness [Recovered/Resolved]
  - Fatigue [Recovered/Resolved]
  - Abdominal pain upper [Recovered/Resolved]
  - Nervousness [Recovered/Resolved]
  - Inappropriate schedule of drug administration [Unknown]
  - Hyperhidrosis [Recovered/Resolved]
  - Flushing [Not Recovered/Not Resolved]
  - Decreased appetite [Recovered/Resolved]
  - Depressed mood [Recovered/Resolved]
  - Drug dependence [Recovered/Resolved]
  - Dyspepsia [Recovered/Resolved]
  - Back pain [Recovered/Resolved]
  - Palpitations [Recovered/Resolved]
  - Nausea [Recovered/Resolved]
  - Irritability [Recovered/Resolved]
  - Sleep paralysis [Recovered/Resolved]
  - Somnolence [Recovered/Resolved]
  - Disturbance in attention [Recovered/Resolved]
  - Malaise [Recovered/Resolved]
  - Anxiety [Not Recovered/Not Resolved]
  - Hot flush [Not Recovered/Not Resolved]
  - Withdrawal syndrome [Not Recovered/Not Resolved]
  - Constipation [Recovered/Resolved]
  - Tension headache [Not Recovered/Not Resolved]
  - Pain [Recovered/Resolved]
  - Feeling abnormal [Recovered/Resolved]
  - Diarrhoea [Recovered/Resolved]
  - Electrocardiogram QT prolonged [Recovered/Resolved]
  - Panic attack [Not Recovered/Not Resolved]
  - Affect lability [Recovered/Resolved]

NARRATIVE: CASE EVENT DATE: 20170222
